FAERS Safety Report 11892147 (Version 1)
Quarter: 2016Q1

REPORT INFORMATION
  Report Type: Report from Study
  Country: US (occurrence: US)
  Receive Date: 20160106
  Receipt Date: 20160106
  Transmission Date: 20160526
  Serious: Yes (Death, Other)
  Sender: FDA-Public Use
  Company Number: US-ROCHE-587534

PATIENT

DRUGS (8)
  1. METHOTREXATE [Suspect]
     Active Substance: METHOTREXATE
     Indication: MANTLE CELL LYMPHOMA
     Dosage: CYCLE 2: 200MG/M2 ON DAY 02 OVER 2 HOURS FOLLOWED BY 800 MG/M2 OVER 22 HOURS OF 21 DAY OF CYCLE
     Route: 042
  2. CYTARABINE. [Suspect]
     Active Substance: CYTARABINE
     Indication: MANTLE CELL LYMPHOMA
     Dosage: CYCLE 2: OVER 2 HOURS EVERY 12 HOURS FOR FOUR DOSES ON DAY 03 AND 04
     Route: 042
  3. RITUXIMAB [Suspect]
     Active Substance: RITUXIMAB
     Indication: MANTLE CELL LYMPHOMA
     Dosage: CYCLE 1/2: ON DAY 1 OF 21 DAY CYCLE.
     Route: 042
  4. VINCRISTINE [Suspect]
     Active Substance: VINCRISTINE
     Indication: MANTLE CELL LYMPHOMA
     Dosage: CYCLE 1: 12 HOURS AFTER LAST DOSE OF CYCLOPHOSPHAMIDE (D5 ) PLUS REPEATED ONJ DAY 12 OF CYCLE
     Route: 042
  5. DEXAMETHASONE. [Suspect]
     Active Substance: DEXAMETHASONE
     Indication: MANTLE CELL LYMPHOMA
     Dosage: CYCLE 1: ON DAY 02 TO 05 AND 12 TO 15. ROUTE IV OR ORAL
     Route: 048
  6. CYCLOPHOSPHAMIDE. [Suspect]
     Active Substance: CYCLOPHOSPHAMIDE
     Indication: MANTLE CELL LYMPHOMA
     Dosage: CYCLE1: OVER 3 HOURS EVERY 12 HOURS FOR 6 DOSES ON DAY 2 3 AND 4
     Route: 042
  7. MESNA. [Suspect]
     Active Substance: MESNA
     Indication: MANTLE CELL LYMPHOMA
     Dosage: CYCLE 1: OVER 24 HOURS, ON DAYS 2 3 AND 4
     Route: 042
  8. DOXORUBICIN [Suspect]
     Active Substance: DOXORUBICIN
     Indication: MANTLE CELL LYMPHOMA
     Dosage: CYCLE 1: CONTINUOUS INFUSION OVER 24 HOURS ON DAY 5 6 AND  7
     Route: 042

REACTIONS (18)
  - Mantle cell lymphoma [Fatal]
  - Acute myeloid leukaemia [Unknown]
  - Stomatitis [Unknown]
  - Neutropenia [Unknown]
  - Thrombocytopenia [Unknown]
  - Febrile neutropenia [Unknown]
  - Fatigue [Unknown]
  - Haemorrhage [Unknown]
  - Neutropenic sepsis [Fatal]
  - Myelodysplastic syndrome [Fatal]
  - Pancreatitis [Unknown]
  - Neurotoxicity [Unknown]
  - Pneumonia [Unknown]
  - Pulmonary haemorrhage [Fatal]
  - Bacteraemia [Unknown]
  - Death [Fatal]
  - Infection [Unknown]
  - Renal failure [Unknown]
